FAERS Safety Report 20104435 (Version 2)
Quarter: 2021Q4

REPORT INFORMATION
  Report Type: Report from Study
  Country: ES (occurrence: ES)
  Receive Date: 20211123
  Receipt Date: 20211128
  Transmission Date: 20220303
  Serious: Yes (Other)
  Sender: FDA-Public Use
  Company Number: None

PATIENT
  Age: 64 Year
  Sex: Male

DRUGS (1)
  1. SIMPONI [Suspect]
     Active Substance: GOLIMUMAB
     Indication: Arthritis enteropathic
     Route: 058
     Dates: start: 20190429

REACTIONS (1)
  - Basal cell carcinoma [Recovering/Resolving]

NARRATIVE: CASE EVENT DATE: 20210702
